FAERS Safety Report 10714251 (Version 1)
Quarter: 2015Q1

REPORT INFORMATION
  Report Type: Spontaneous
  Country: US (occurrence: US)
  Receive Date: 20150115
  Receipt Date: 20150115
  Transmission Date: 20150721
  Serious: Yes (Hospitalization, Other)
  Sender: FDA-Public Use
  Company Number: US-TEVA-533855USA

PATIENT
  Sex: Female

DRUGS (1)
  1. COPAXONE [Suspect]
     Active Substance: GLATIRAMER ACETATE
     Indication: MULTIPLE SCLEROSIS
     Dates: start: 20120411

REACTIONS (5)
  - Transient ischaemic attack [Unknown]
  - Urinary tract infection [Unknown]
  - Muscle spasms [Unknown]
  - Skin wound [Unknown]
  - Urosepsis [Unknown]

NARRATIVE: CASE EVENT DATE: 2014
